FAERS Safety Report 6045438-4 (Version None)
Quarter: 2009Q1

REPORT INFORMATION
  Report Type: 
  Country: None (occurrence: None)
  Receive Date: 20090121
  Receipt Date: 20090114
  Transmission Date: 20090719
  Serious: Yes (Other)
  Sender: FDA-Public Use
  Company Number: US-AVENTIS-200817886US

PATIENT
  Sex: Female
  Weight: 65.9 kg

DRUGS (12)
  1. RILUTEK [Suspect]
     Indication: DEPRESSION
     Dates: start: 20060213, end: 20060901
  2. RILUTEK [Suspect]
     Dates: start: 20061001
  3. RILUTEK [Suspect]
     Dates: start: 20060213, end: 20060901
  4. RILUTEK [Suspect]
     Dates: start: 20061001
  5. VALIUM [Concomitant]
     Dosage: DOSE: UNK
  6. ZOLOFT [Concomitant]
     Dosage: DOSE: UNK
  7. IMITREX [Concomitant]
     Dosage: DOSE: UNK
  8. ROZEREM [Concomitant]
     Dosage: DOSE: UNK
  9. ALLEGRA                            /01314201/ [Concomitant]
     Dosage: DOSE: UNK
  10. FLONASE [Concomitant]
     Dosage: DOSE: UNK
  11. NUVARING [Concomitant]
     Dosage: DOSE: UNK
  12. SYNTHROID [Concomitant]
     Dosage: DOSE: UNK

REACTIONS (6)
  - ABORTION SPONTANEOUS [None]
  - DRUG EXPOSURE DURING PREGNANCY [None]
  - DRUG INEFFECTIVE FOR UNAPPROVED INDICATION [None]
  - DYSKINESIA [None]
  - OFF LABEL USE [None]
  - TARDIVE DYSKINESIA [None]
